FAERS Safety Report 5020915-3 (Version None)
Quarter: 2006Q2

REPORT INFORMATION
  Report Type: 
  Country: None (occurrence: None)
  Receive Date: 20060607
  Receipt Date: 20060607
  Transmission Date: 20061013
  Serious: Yes (Life-Threatening, Hospitalization, Disabling)
  Sender: FDA-Public Use
  Company Number: None

PATIENT
  Age: 55 Year
  Sex: Male
  Weight: 92 kg

DRUGS (1)
  1. RITUXIMAB    750MG [Suspect]
     Indication: LYMPHOMA
     Dosage: 750MG  ONCE  IV
     Route: 042
     Dates: start: 20050610, end: 20050610

REACTIONS (3)
  - INFUSION RELATED REACTION [None]
  - RESPIRATORY DISTRESS [None]
  - RESPIRATORY FAILURE [None]
